FAERS Safety Report 9447488 (Version 1)
Quarter: 2013Q3

REPORT INFORMATION
  Report Type: Spontaneous
  Country: FR (occurrence: None)
  Receive Date: 20130805
  Receipt Date: 20130805
  Transmission Date: 20140515
  Serious: Yes (Hospitalization)
  Sender: FDA-Public Use
  Company Number: 7226665

PATIENT
  Age: 81 Year
  Sex: Female

DRUGS (9)
  1. LEVOTHYROXINE [Suspect]
     Indication: PRODUCT USED FOR UNKNOWN INDICATION
     Dosage: 1 DF TUESDAY THURSDAY AND SATURDAY
     Route: 048
  2. SINTROM [Suspect]
     Dosage: ON EVENINGS ACCORDING TO INR
     Route: 048
     Dates: start: 20130304, end: 20130308
  3. OFLOCET [Suspect]
     Indication: PRODUCT USED FOR UNKNOWN INDICATION
     Dosage: 1 DF ON MORNING
     Route: 048
     Dates: start: 20130304, end: 20130311
  4. TAHOR (ATORVASTATIN CALCIUM) [Suspect]
     Indication: PRODUCT USED FOR UNKNOWN INDICATION
     Dosage: 1 DF ON EVENING
     Route: 048
  5. CORDARONE [Suspect]
     Indication: PRODUCT USED FOR UNKNOWN INDICATION
     Dosage: 1 DF ON MORNING
     Route: 048
  6. CALCIPARIN (HEPARIN CACLIUM) (12500 IU (INTERNATIONAL UNIT) (SOULTION FOR INJECTION) (HEPARIN CALCIUM) [Concomitant]
  7. LANTUS (INSULIN GLARGINE) (10 IU (INTERNATIONAL UNIT)) (INSULIN GLARGINE) [Concomitant]
  8. MONOTILDIEM/ 00489701/ (DILTIAZEM) (300 MG, PROLONGED-RELEASE TABLET) (DILTAIZEM) [Concomitant]
  9. LASIX / 00032601/ (FUROSEMIDE) (40, TABLET) (FUROSEMIDE) [Concomitant]

REACTIONS (3)
  - International normalised ratio increased [None]
  - Overdose [None]
  - Drug interaction [None]
